FAERS Safety Report 12372776 (Version 2)
Quarter: 2016Q2

REPORT INFORMATION
  Report Type: Spontaneous
  Country: US (occurrence: US)
  Receive Date: 20160516
  Receipt Date: 20160520
  Transmission Date: 20160815
  Serious: Yes (Hospitalization, Other)
  Sender: FDA-Public Use
  Company Number: US-ASTRAZENECA-2016SE38007

PATIENT
  Age: 77 Year
  Sex: Female
  Weight: 52.6 kg

DRUGS (18)
  1. PRILOSEC [Suspect]
     Active Substance: OMEPRAZOLE MAGNESIUM
     Route: 048
  2. PRILOSEC [Suspect]
     Active Substance: OMEPRAZOLE MAGNESIUM
     Route: 048
     Dates: end: 201602
  3. SUTENT [Suspect]
     Active Substance: SUNITINIB MALATE
     Indication: RENAL CELL CARCINOMA
     Dosage: 50 MG - 2 WEEKS ON/1 WEEK OFF
     Route: 065
     Dates: start: 20150710, end: 201603
  4. SUTENT [Suspect]
     Active Substance: SUNITINIB MALATE
     Indication: RENAL CELL CARCINOMA
     Dosage: 37.5 MG - 2 WEEKS ON/1 WEEK OFF
     Route: 065
     Dates: start: 201603
  5. VALSARTAN. [Concomitant]
     Active Substance: VALSARTAN
     Dosage: AS REQUIRED
  6. TUMS [Concomitant]
     Active Substance: CALCIUM CARBONATE
     Dosage: AS REQUIRED IN THE EVENING, YEARS
  7. MILK OF MAGNESIA [Concomitant]
     Active Substance: MAGNESIUM HYDROXIDE
     Indication: THROAT IRRITATION
     Dosage: YEARS
  8. IMODIUM [Concomitant]
     Active Substance: LOPERAMIDE HYDROCHLORIDE
  9. VITAMIN B12 [Concomitant]
     Active Substance: CYANOCOBALAMIN
     Dosage: YEARS
  10. GABAPENTIN. [Concomitant]
     Active Substance: GABAPENTIN
     Indication: PAIN
     Dosage: REGULARLY
  11. XGEVA [Concomitant]
     Active Substance: DENOSUMAB
     Dosage: ONCE EACH MONTH
     Dates: start: 201507
  12. FENOFIBRATE. [Concomitant]
     Active Substance: FENOFIBRATE
     Indication: BLOOD TRIGLYCERIDES ABNORMAL
     Dosage: YEARS
  13. NEXIUM [Suspect]
     Active Substance: ESOMEPRAZOLE MAGNESIUM
     Route: 048
     Dates: start: 201507, end: 201602
  14. PROCRIT [Concomitant]
     Active Substance: ERYTHROPOIETIN
     Indication: BLOOD GLUCOSE ABNORMAL
     Dosage: AS REQUIRED
     Dates: start: 201501
  15. METOPROLOL. [Concomitant]
     Active Substance: METOPROLOL
     Indication: HYPERTENSION
     Dosage: YEARS
  16. PRILOSEC [Suspect]
     Active Substance: OMEPRAZOLE MAGNESIUM
     Route: 048
  17. MULTIVITAMINS [Concomitant]
     Active Substance: VITAMINS
  18. TYLENOL [Concomitant]
     Active Substance: ACETAMINOPHEN
     Indication: PAIN
     Dosage: OCCASIONALLY

REACTIONS (14)
  - Alopecia [Not Recovered/Not Resolved]
  - Metastases to spine [Unknown]
  - Renal cell carcinoma stage IV [Unknown]
  - Blood pressure increased [Not Recovered/Not Resolved]
  - Nasopharyngitis [Unknown]
  - Memory impairment [Unknown]
  - Gastrooesophageal reflux disease [Not Recovered/Not Resolved]
  - Malaise [Unknown]
  - Yellow skin [Not Recovered/Not Resolved]
  - Diarrhoea [Not Recovered/Not Resolved]
  - Oral pain [Unknown]
  - Skin reaction [Not Recovered/Not Resolved]
  - Nasal congestion [Unknown]
  - Ageusia [Recovered/Resolved]

NARRATIVE: CASE EVENT DATE: 2015
